FAERS Safety Report 9819348 (Version 2)
Quarter: 2014Q1

REPORT INFORMATION
  Report Type: Spontaneous
  Country: US (occurrence: US)
  Receive Date: 20140115
  Receipt Date: 20140221
  Transmission Date: 20141002
  Serious: Yes (Other)
  Sender: FDA-Public Use
  Company Number: US-PFIZER INC-2014010229

PATIENT
  Age: 80 Year
  Sex: Female
  Weight: 89.8 kg

DRUGS (1)
  1. XALATAN [Suspect]
     Indication: GLAUCOMA
     Dosage: UNK, 1X/DAY
     Route: 047

REACTIONS (3)
  - Gastric ulcer perforation [Recovering/Resolving]
  - Intestinal ulcer perforation [Recovering/Resolving]
  - Cataract [Unknown]
